FAERS Safety Report 16966741 (Version 2)
Quarter: 2025Q1

REPORT INFORMATION
  Report Type: Spontaneous
  Country: US (occurrence: US)
  Receive Date: 20191028
  Receipt Date: 20250222
  Transmission Date: 20250409
  Serious: No
  Sender: SANOFI AVENTIS
  Company Number: US-SA-2019SA292475

PATIENT
  Age: 14 Year
  Sex: Female
  Weight: 84.09 kg

DRUGS (3)
  1. DUPIXENT [Suspect]
     Active Substance: DUPILUMAB
     Indication: Dermatitis atopic
     Dosage: 300 MG, QOW
     Route: 058
     Dates: start: 20191010
  2. CHILDREN^S CETIRIZINE HYDROCHLORIDE [Concomitant]
  3. COSMETICS [Concomitant]
     Active Substance: COSMETICS

REACTIONS (7)
  - Skin fissures [Unknown]
  - Dry skin [Not Recovered/Not Resolved]
  - Sleep disorder [Unknown]
  - Pruritus [Unknown]
  - Erythema [Unknown]
  - Eye swelling [Unknown]
  - Skin exfoliation [Unknown]
